FAERS Safety Report 7217959-X (Version None)
Quarter: 2011Q1

REPORT INFORMATION
  Report Type: 
  Country: None (occurrence: None)
  Receive Date: 20110110
  Receipt Date: 20101223
  Transmission Date: 20110831
  Serious: Yes (Death)
  Sender: FDA-Public Use
  Company Number: A0903839A

PATIENT

DRUGS (1)
  1. ADVAIR [Suspect]
     Indication: PRODUCT USED FOR UNKNOWN INDICATION
     Route: 055

REACTIONS (7)
  - ASTHMA [None]
  - DYSPNOEA [None]
  - LOSS OF CONSCIOUSNESS [None]
  - BRAIN INJURY [None]
  - CONVULSION [None]
  - RESPIRATORY FAILURE [None]
  - DEATH [None]
